FAERS Safety Report 15674527 (Version 1)
Quarter: 2018Q4

REPORT INFORMATION
  Report Type: Report from Study
  Country: None (occurrence: RO)
  Receive Date: 20181130
  Receipt Date: 20181130
  Transmission Date: 20190205
  Serious: Yes (Hospitalization, Other)
  Sender: FDA-Public Use
  Company Number: RO-ABBVIE-18K-135-2568092-00

PATIENT
  Age: 78 Year
  Sex: Female

DRUGS (5)
  1. METHOTREXATE. [Concomitant]
     Active Substance: METHOTREXATE
     Indication: ANKYLOSING SPONDYLITIS
     Dosage: UNKNOWN
     Route: 048
  2. HUMIRA [Suspect]
     Active Substance: ADALIMUMAB
     Indication: RHEUMATOID ARTHRITIS
     Route: 058
     Dates: start: 20170115, end: 201806
  3. ASPENTER [Concomitant]
     Active Substance: ASPIRIN
     Indication: HYPERTENSION
     Route: 048
  4. DETRALEX [Concomitant]
     Active Substance: DIOSMIN\HESPERIDIN
     Indication: PRODUCT USED FOR UNKNOWN INDICATION
     Route: 048
  5. ENAP [Concomitant]
     Active Substance: ENALAPRIL
     Indication: HYPERTENSION
     Dosage: UNKNOWN
     Route: 048

REACTIONS (6)
  - Chest injury [Recovered/Resolved]
  - Blood pressure fluctuation [Not Recovered/Not Resolved]
  - Femur fracture [Recovered/Resolved]
  - Pyrexia [Recovered/Resolved]
  - Pulmonary tuberculosis [Not Recovered/Not Resolved]
  - Ischaemic cardiomyopathy [Not Recovered/Not Resolved]

NARRATIVE: CASE EVENT DATE: 20180525
